FAERS Safety Report 5154059-7 (Version None)
Quarter: 2006Q4

REPORT INFORMATION
  Report Type: 
  Country: None (occurrence: None)
  Receive Date: 20061116
  Receipt Date: 20061116
  Transmission Date: 20070319
  Serious: Yes (Life-Threatening)
  Sender: FDA-Public Use
  Company Number: None

PATIENT
  Age: 69 Year
  Sex: Female
  Weight: 92 kg

DRUGS (10)
  1. TIKOSYN [Suspect]
     Indication: ATRIAL FIBRILLATION
     Dosage: 500 MCG BID X 2 DOSES PO
     Route: 048
     Dates: start: 20060107, end: 20060108
  2. ASPIRIN [Concomitant]
  3. PLAVIX [Concomitant]
  4. LIPITOR [Concomitant]
  5. NIACIN [Concomitant]
  6. WARFARIN SODIUM [Concomitant]
  7. LISINOPRIL [Concomitant]
  8. ATENOLOL [Concomitant]
  9. INSULIN [Concomitant]
  10. IMDUR [Concomitant]

REACTIONS (1)
  - TORSADE DE POINTES [None]
